FAERS Safety Report 6301875-1 (Version None)
Quarter: 2009Q3

REPORT INFORMATION
  Report Type: 
  Country: None (occurrence: None)
  Receive Date: 20090807
  Receipt Date: 20090728
  Transmission Date: 20100115
  Serious: Yes (Hospitalization)
  Sender: FDA-Public Use
  Company Number: FR-GENENTECH-288078

PATIENT
  Age: 30 Year
  Sex: Female

DRUGS (2)
  1. MABTHERA [Suspect]
     Indication: CRYOGLOBULINAEMIA
     Dosage: UNK
     Route: 042
     Dates: start: 20090601, end: 20090601
  2. ANTIHYPERTENSIVE AGENTS [Concomitant]
     Indication: HYPERTENSION

REACTIONS (3)
  - HYPOTENSION [None]
  - PURPURA [None]
  - RENAL IMPAIRMENT [None]
